FAERS Safety Report 5454775-3 (Version None)
Quarter: 2007Q3

REPORT INFORMATION
  Report Type: 
  Country: None (occurrence: None)
  Receive Date: 20070917
  Receipt Date: 20070831
  Transmission Date: 20080115
  Serious: No
  Sender: FDA-Public Use
  Company Number: US-BOEHRINGER INGELHEIM PHARMACEUTICALS, INC.-2007-BP-18620BP

PATIENT
  Sex: Female

DRUGS (12)
  1. MIRAPEX [Suspect]
     Indication: RESTLESS LEGS SYNDROME
  2. NABUMETONE [Concomitant]
  3. PREVACID [Concomitant]
     Indication: REFLUX OESOPHAGITIS
  4. TRIAMTERENE [Concomitant]
  5. ZOCOR [Concomitant]
  6. ATENOLOL [Concomitant]
  7. TRICOR [Concomitant]
  8. EFFEXOR [Concomitant]
  9. METFORMIN HCL [Concomitant]
  10. VITAMIN [Concomitant]
  11. CALCIUM [Concomitant]
  12. TYLENOL W/ CODEINE [Concomitant]

REACTIONS (5)
  - FEELING ABNORMAL [None]
  - PRURITUS [None]
  - RESTLESS LEGS SYNDROME [None]
  - RESTLESSNESS [None]
  - THERAPEUTIC RESPONSE DECREASED [None]
